FAERS Safety Report 6976877-2 (Version None)
Quarter: 2010Q3

REPORT INFORMATION
  Report Type: 
  Country: None (occurrence: None)
  Receive Date: 20100910
  Receipt Date: 20100903
  Transmission Date: 20110219
  Serious: Yes (Hospitalization)
  Sender: FDA-Public Use
  Company Number: B0672799A

PATIENT
  Sex: Female
  Weight: 39 kg

DRUGS (6)
  1. CELSENTRI [Suspect]
     Indication: HIV INFECTION
     Dosage: 300MG TWICE PER DAY
     Route: 048
     Dates: start: 20100604
  2. METHOTREXATE [Suspect]
     Dosage: 4500MG EVERY 3 WEEKS
     Route: 042
     Dates: start: 20100504, end: 20100623
  3. ARACYTINE [Suspect]
     Dosage: 2600MG EVERY 3 WEEKS
     Route: 042
     Dates: start: 20100505, end: 20100714
  4. ISENTRESS [Concomitant]
     Indication: HIV INFECTION
     Route: 048
  5. INTELENCE [Concomitant]
     Indication: HIV INFECTION
     Route: 048
  6. CALCIUM FOLINATE [Concomitant]
     Dates: start: 20100505

REACTIONS (9)
  - BONE MARROW FAILURE [None]
  - DIARRHOEA [None]
  - DRUG INTERACTION [None]
  - LUNG DISORDER [None]
  - NAUSEA [None]
  - PANCYTOPENIA [None]
  - PYREXIA [None]
  - RESPIRATORY DISTRESS [None]
  - VOMITING [None]
